FAERS Safety Report 7257128-0 (Version None)
Quarter: 2011Q1

REPORT INFORMATION
  Report Type: 
  Country: None (occurrence: None)
  Receive Date: 20110129
  Receipt Date: 20100730
  Transmission Date: 20110831
  Serious: No
  Sender: FDA-Public Use
  Company Number: US-ABBOTT-10P-163-0661201-00

PATIENT
  Age: 23 Year
  Sex: Female

DRUGS (4)
  1. NEXIUM [Concomitant]
     Indication: GASTROOESOPHAGEAL REFLUX DISEASE
     Dosage: ONCE/DAY
     Route: 048
  2. ZOLOFT [Concomitant]
     Indication: ANXIETY
     Dosage: ONCE/DAY
     Route: 048
  3. HUMIRA [Suspect]
     Indication: CROHN'S DISEASE
     Dates: start: 20100301, end: 20100721
  4. BIRTH CONTROL [Concomitant]
     Indication: CONTRACEPTION
     Dosage: ONCE/DAY
     Route: 048

REACTIONS (1)
  - PELVIC ABSCESS [None]
